FAERS Safety Report 4888552-9 (Version None)
Quarter: 2005Q4

REPORT INFORMATION
  Report Type: 
  Country: None (occurrence: None)
  Receive Date: 20051215
  Receipt Date: 20050504
  Transmission Date: 20060501
  Serious: Yes (Hospitalization)
  Sender: FDA-Public Use
  Company Number: 2005064521

PATIENT
  Age: 76 Year
  Sex: Female
  Weight: 76.2043 kg

DRUGS (6)
  1. BEXTRA [Suspect]
     Indication: ARTHRALGIA
     Dosage: 10 MG (10 MG, 1 IN 1 D), ORAL
     Route: 048
     Dates: start: 20030101, end: 20041201
  2. ATORVASTATIN CALCIUM [Concomitant]
  3. ALENDRONATE SODIUM [Concomitant]
  4. LEVOTHYROXINE SODIUM [Concomitant]
  5. ULTRACET [Concomitant]
  6. SULFASALAZINE [Concomitant]

REACTIONS (2)
  - ATRIAL FIBRILLATION [None]
  - MITRAL VALVE PROLAPSE [None]
